FAERS Safety Report 4637635-7 (Version None)
Quarter: 2005Q2

REPORT INFORMATION
  Report Type: 
  Country: None (occurrence: None)
  Receive Date: 20050418
  Receipt Date: 20040601
  Transmission Date: 20051028
  Serious: Yes (Hospitalization)
  Sender: FDA-Public Use
  Company Number: FR-GLAXOSMITHKLINE-B0334888A

PATIENT
  Age: 39 Year
  Sex: Female

DRUGS (1)
  1. DEROXAT [Suspect]
     Indication: MAJOR DEPRESSION
     Route: 048
     Dates: start: 20020101, end: 20041126

REACTIONS (2)
  - FALL [None]
  - NORMAL DELIVERY [None]
